FAERS Safety Report 11750513 (Version 1)
Quarter: 2015Q4

REPORT INFORMATION
  Report Type: Spontaneous
  Country: BR (occurrence: BR)
  Receive Date: 20151118
  Receipt Date: 20151118
  Transmission Date: 20160304
  Serious: Yes (Other)
  Sender: FDA-Public Use
  Company Number: BR-PFIZER INC-2015387953

PATIENT
  Age: 16 Year
  Sex: Female
  Weight: 80 kg

DRUGS (1)
  1. DOSTINEX [Suspect]
     Active Substance: CABERGOLINE
     Dosage: UNK
     Dates: start: 2014

REACTIONS (4)
  - Dizziness [Unknown]
  - Asthenia [Unknown]
  - Product use issue [Unknown]
  - Neoplasm [Unknown]

NARRATIVE: CASE EVENT DATE: 2014
